FAERS Safety Report 6876701-2 (Version None)
Quarter: 2010Q3

REPORT INFORMATION
  Report Type: 
  Country: None (occurrence: None)
  Receive Date: 20100727
  Receipt Date: 20100720
  Transmission Date: 20110219
  Serious: Yes (Other)
  Sender: FDA-Public Use
  Company Number: TW-ROCHE-716627

PATIENT

DRUGS (1)
  1. MIRCERA [Suspect]
     Route: 065
     Dates: start: 20100301

REACTIONS (1)
  - HAEMATOCRIT DECREASED [None]
